FAERS Safety Report 6103379-8 (Version None)
Quarter: 2009Q1

REPORT INFORMATION
  Report Type: 
  Country: None (occurrence: None)
  Receive Date: 20090305
  Receipt Date: 20090224
  Transmission Date: 20090719
  Serious: No
  Sender: FDA-Public Use
  Company Number: US-BAYER-200836807NA

PATIENT
  Age: 51 Year
  Sex: Female
  Weight: 91 kg

DRUGS (10)
  1. BETASERON [Suspect]
     Indication: RELAPSING-REMITTING MULTIPLE SCLEROSIS
     Dosage: TOTAL DAILY DOSE: 8 MIU
     Route: 058
     Dates: start: 20061101, end: 20080907
  2. ACIPHEX [Concomitant]
     Dosage: TOTAL DAILY DOSE: 20 MG
     Route: 048
  3. ASPIRIN [Concomitant]
     Dosage: TOTAL DAILY DOSE: 81 MG
     Route: 048
  4. BENICAR [Concomitant]
     Dosage: TOTAL DAILY DOSE: 20 MG
     Route: 048
  5. DILANTIN [Concomitant]
     Route: 048
  6. GABAPENTIN [Concomitant]
     Dosage: TOTAL DAILY DOSE: 1600 MG
     Route: 048
  7. PREMARIN [Concomitant]
     Dosage: TOTAL DAILY DOSE: 45 MG
     Route: 048
  8. TOPAMAX [Concomitant]
     Dosage: TOTAL DAILY DOSE: 100 MG
     Route: 048
  9. TYSABRI [Concomitant]
     Route: 042
  10. ULTRAM ER [Concomitant]
     Dosage: TOTAL DAILY DOSE: 200 MG
     Route: 048

REACTIONS (5)
  - FATIGUE [None]
  - GAIT DISTURBANCE [None]
  - MULTIPLE SCLEROSIS RELAPSE [None]
  - NEURALGIA [None]
  - PARAESTHESIA [None]
